FAERS Safety Report 25169000 (Version 1)
Quarter: 2025Q2

REPORT INFORMATION
  Report Type: Spontaneous
  Country: GB (occurrence: GB)
  Receive Date: 20250407
  Receipt Date: 20250407
  Transmission Date: 20250716
  Serious: Yes (Other)
  Sender: MYLAN
  Company Number: GB-MHRA-TPP26490307C10718429YC1743513510504

PATIENT
  Age: 70 Year
  Sex: Male
  Weight: 83 kg

DRUGS (12)
  1. ATORVASTATIN [Suspect]
     Active Substance: ATORVASTATIN
     Indication: Blood cholesterol increased
     Dosage: 20 MILLIGRAM, QD (ONE TABLET TO BE TAKEN DAILY TO LOWER CHOLESTER)
     Dates: start: 20250318
  2. ATORVASTATIN [Suspect]
     Active Substance: ATORVASTATIN
     Dosage: 20 MILLIGRAM, QD (ONE TABLET TO BE TAKEN DAILY TO LOWER CHOLESTER)
     Route: 065
     Dates: start: 20250318
  3. ATORVASTATIN [Suspect]
     Active Substance: ATORVASTATIN
     Dosage: 20 MILLIGRAM, QD (ONE TABLET TO BE TAKEN DAILY TO LOWER CHOLESTER)
     Route: 065
     Dates: start: 20250318
  4. ATORVASTATIN [Suspect]
     Active Substance: ATORVASTATIN
     Dosage: 20 MILLIGRAM, QD (ONE TABLET TO BE TAKEN DAILY TO LOWER CHOLESTER)
     Dates: start: 20250318
  5. MEBEVERINE HYDROCHLORIDE [Concomitant]
     Active Substance: MEBEVERINE HYDROCHLORIDE
     Indication: Ill-defined disorder
     Dosage: 1 DOSAGE FORM, Q8H (TAKE ONE TABLET THREE TIMES A DAY)
     Dates: start: 20240404, end: 20250121
  6. MEBEVERINE HYDROCHLORIDE [Concomitant]
     Active Substance: MEBEVERINE HYDROCHLORIDE
     Dosage: 1 DOSAGE FORM, Q8H (TAKE ONE TABLET THREE TIMES A DAY)
     Route: 065
     Dates: start: 20240404, end: 20250121
  7. MEBEVERINE HYDROCHLORIDE [Concomitant]
     Active Substance: MEBEVERINE HYDROCHLORIDE
     Dosage: 1 DOSAGE FORM, Q8H (TAKE ONE TABLET THREE TIMES A DAY)
     Route: 065
     Dates: start: 20240404, end: 20250121
  8. MEBEVERINE HYDROCHLORIDE [Concomitant]
     Active Substance: MEBEVERINE HYDROCHLORIDE
     Dosage: 1 DOSAGE FORM, Q8H (TAKE ONE TABLET THREE TIMES A DAY)
     Dates: start: 20240404, end: 20250121
  9. OMEPRAZOLE [Concomitant]
     Active Substance: OMEPRAZOLE
     Indication: Ill-defined disorder
     Dosage: 1 DOSAGE FORM, QD (TAKE ONE CAPSULE DAILY FOR 4 WEEKS THEN ONCE DA)
     Dates: start: 20240404
  10. OMEPRAZOLE [Concomitant]
     Active Substance: OMEPRAZOLE
     Dosage: 1 DOSAGE FORM, QD (TAKE ONE CAPSULE DAILY FOR 4 WEEKS THEN ONCE DA)
     Route: 065
     Dates: start: 20240404
  11. OMEPRAZOLE [Concomitant]
     Active Substance: OMEPRAZOLE
     Dosage: 1 DOSAGE FORM, QD (TAKE ONE CAPSULE DAILY FOR 4 WEEKS THEN ONCE DA)
     Route: 065
     Dates: start: 20240404
  12. OMEPRAZOLE [Concomitant]
     Active Substance: OMEPRAZOLE
     Dosage: 1 DOSAGE FORM, QD (TAKE ONE CAPSULE DAILY FOR 4 WEEKS THEN ONCE DA)
     Dates: start: 20240404

REACTIONS (3)
  - Decreased appetite [Recovering/Resolving]
  - Headache [Unknown]
  - Pain in extremity [Recovering/Resolving]
